FAERS Safety Report 7796719-5 (Version None)
Quarter: 2011Q4

REPORT INFORMATION
  Report Type: 
  Country: None (occurrence: None)
  Receive Date: 20111005
  Receipt Date: 20110927
  Transmission Date: 20120403
  Serious: Yes (Other)
  Sender: FDA-Public Use
  Company Number: US-JNJFOC-20110811891

PATIENT
  Sex: Female
  Weight: 54.43 kg

DRUGS (3)
  1. NUCYNTA [Suspect]
     Route: 048
     Dates: start: 20110818
  2. NEURONTIN [Concomitant]
     Route: 065
  3. NUCYNTA [Suspect]
     Indication: PAIN
     Route: 048

REACTIONS (1)
  - ASTHMA [None]
